FAERS Safety Report 18215928 (Version 1)
Quarter: 2020Q3

REPORT INFORMATION
  Report Type: Spontaneous
  Country: US (occurrence: US)
  Receive Date: 20200901
  Receipt Date: 20200901
  Transmission Date: 20201103
  Serious: No
  Sender: FDA-Public Use
  Company Number: US-ELI_LILLY_AND_COMPANY-US202008001656

PATIENT
  Age: 66 Year
  Sex: Female

DRUGS (17)
  1. HUMULIN R U?500 [Suspect]
     Active Substance: INSULIN HUMAN
     Dosage: 50 U, DAILY (AT DINNER)
     Route: 058
  2. HUMULIN R U?500 [Suspect]
     Active Substance: INSULIN HUMAN
     Indication: TYPE 2 DIABETES MELLITUS
     Dosage: 30 U, EACH MORNING (AT BREAKFAST)
     Route: 058
     Dates: start: 201902
  3. HUMULIN R U?500 [Suspect]
     Active Substance: INSULIN HUMAN
     Dosage: 30 U, EACH MORNING (AT BREAKFAST)
     Route: 058
  4. HUMULIN R U?500 [Suspect]
     Active Substance: INSULIN HUMAN
     Indication: TYPE 2 DIABETES MELLITUS
     Dosage: 30 U, EACH MORNING (AT BREAKFAST)
     Route: 058
     Dates: start: 201902
  5. HUMULIN R U?500 [Suspect]
     Active Substance: INSULIN HUMAN
     Dosage: 50 U, DAILY (AT DINNER)
     Route: 058
     Dates: start: 201902
  6. HUMULIN R U?500 [Suspect]
     Active Substance: INSULIN HUMAN
     Dosage: 30 U, EACH MORNING (AT BREAKFAST)
     Route: 058
  7. HUMULIN R U?500 [Suspect]
     Active Substance: INSULIN HUMAN
     Dosage: 10 U, DAILY (AT LUNCH)
     Route: 058
  8. HUMULIN R U?500 [Suspect]
     Active Substance: INSULIN HUMAN
     Dosage: 10 U, DAILY (AT LUNCH)
     Route: 058
  9. HUMULIN R U?500 [Suspect]
     Active Substance: INSULIN HUMAN
     Dosage: 10 U, DAILY (AT BEDTIME)
     Route: 058
  10. METFORMIN [Concomitant]
     Active Substance: METFORMIN HYDROCHLORIDE
     Indication: TYPE 2 DIABETES MELLITUS
     Dosage: 2000 MG, DAILY
  11. HUMULIN R U?500 [Suspect]
     Active Substance: INSULIN HUMAN
     Dosage: 50 U, DAILY (AT DINNER)
     Route: 058
     Dates: start: 201902
  12. HUMULIN R U?500 [Suspect]
     Active Substance: INSULIN HUMAN
     Dosage: 10 U, DAILY (AT BEDTIME)
     Route: 058
     Dates: start: 201902
  13. HUMULIN R U?500 [Suspect]
     Active Substance: INSULIN HUMAN
     Dosage: 10 U, DAILY (AT LUNCH)
     Route: 058
     Dates: start: 201902
  14. HUMULIN R U?500 [Suspect]
     Active Substance: INSULIN HUMAN
     Dosage: 10 U, DAILY (AT LUNCH)
     Route: 058
     Dates: start: 201902
  15. HUMULIN R U?500 [Suspect]
     Active Substance: INSULIN HUMAN
     Dosage: 10 U, DAILY (AT BEDTIME)
     Route: 058
     Dates: start: 201902
  16. HUMULIN R U?500 [Suspect]
     Active Substance: INSULIN HUMAN
     Dosage: 50 U, DAILY (AT DINNER)
     Route: 058
  17. HUMULIN R U?500 [Suspect]
     Active Substance: INSULIN HUMAN
     Dosage: 10 U, DAILY (AT BEDTIME)
     Route: 058

REACTIONS (3)
  - Glycosylated haemoglobin increased [Unknown]
  - Blood glucose decreased [Unknown]
  - Blood glucose increased [Unknown]

NARRATIVE: CASE EVENT DATE: 201902
